FAERS Safety Report 5793661-6 (Version None)
Quarter: 2008Q2

REPORT INFORMATION
  Report Type: 
  Country: None (occurrence: None)
  Receive Date: 20080627
  Receipt Date: 20080619
  Transmission Date: 20081010
  Serious: Yes (Hospitalization)
  Sender: FDA-Public Use
  Company Number: FR-AMGEN-UK288533

PATIENT
  Sex: Female

DRUGS (5)
  1. NEULASTA [Suspect]
     Indication: CHEMOTHERAPY
     Route: 058
     Dates: start: 20080410, end: 20080411
  2. LEVOTHYROXINE SODIUM [Concomitant]
  3. EPIRUBICIN [Concomitant]
     Dates: start: 20080313
  4. CYCLOPHOSPHAMIDE [Concomitant]
     Dates: start: 20080313
  5. FLUOROURACIL [Concomitant]
     Dates: start: 20080313

REACTIONS (1)
  - THERAPEUTIC RESPONSE DECREASED [None]
